FAERS Safety Report 5600678-0 (Version None)
Quarter: 2008Q1

REPORT INFORMATION
  Report Type: 
  Country: None (occurrence: None)
  Receive Date: 20080123
  Receipt Date: 20080111
  Transmission Date: 20080703
  Serious: Yes (Other)
  Sender: FDA-Public Use
  Company Number: US-PFIZER INC-2008003603

PATIENT
  Sex: Female
  Weight: 75 kg

DRUGS (6)
  1. DILANTIN [Suspect]
     Indication: CONVULSION
  2. PRILOSEC [Concomitant]
  3. LANOXIN [Concomitant]
  4. ATENOLOL [Concomitant]
  5. CARDURA [Concomitant]
  6. CELEXA [Concomitant]

REACTIONS (5)
  - ANOREXIA [None]
  - APATHY [None]
  - FATIGUE [None]
  - GASTRIC DISORDER [None]
  - HAEMORRHAGE [None]
